FAERS Safety Report 9351564 (Version 3)
Quarter: 2013Q3

REPORT INFORMATION
  Report Type: Spontaneous
  Country: SE (occurrence: SE)
  Receive Date: 20130617
  Receipt Date: 20130813
  Transmission Date: 20140515
  Serious: Yes (Hospitalization, Other)
  Sender: FDA-Public Use
  Company Number: PHHY2013SE061127

PATIENT
  Age: 48 Year
  Sex: Male

DRUGS (3)
  1. TEGRETOL [Suspect]
     Dosage: 2 TABLETS TWICE A DAY
     Route: 048
     Dates: start: 201305
  2. TEGRETOL [Suspect]
     Dosage: 1.5 TABLETS TWICE A DAY
     Route: 048
  3. ERGENYL [Concomitant]
     Dosage: UNK UKN, UNK

REACTIONS (1)
  - Muscle spasms [Not Recovered/Not Resolved]
